FAERS Safety Report 19578400 (Version 4)
Quarter: 2021Q3

REPORT INFORMATION
  Report Type: Spontaneous
  Country: GB (occurrence: GB)
  Receive Date: 20210719
  Receipt Date: 20210921
  Transmission Date: 20211014
  Serious: Yes (Other)
  Sender: FDA-Public Use
  Company Number: GB-GLAXOSMITHKLINE-GB2020187483

PATIENT
  Sex: Male

DRUGS (13)
  1. FLUCONAZOLE. [Suspect]
     Active Substance: FLUCONAZOLE
     Indication: PRODUCT USED FOR UNKNOWN INDICATION
     Dosage: 50 MG (50 MILLIGRAM REPORTED: THERAPY START DATE / THERAPY END DATE ASKED BUT UNKNOWN)
     Route: 065
  2. NINLARO [Suspect]
     Active Substance: IXAZOMIB CITRATE
     Indication: PRODUCT USED FOR UNKNOWN INDICATION
     Dosage: 3 MG (3 MILLIGRAMREPORTED: THERAPY START DATE / THERAPY END DATE ASKED BUT UNKNOWN)
     Route: 048
  3. IXAZOMIB [Concomitant]
     Active Substance: IXAZOMIB
     Indication: PRODUCT USED FOR UNKNOWN INDICATION
     Dosage: 3 MG (3 MILLIGRAM REPORTED: THERAPY START DATE / THERAPY END DATE ASKED BUT UNKNOWN)
     Route: 048
  4. COTRIMOXAZOLE [Suspect]
     Active Substance: SULFAMETHOXAZOLE\TRIMETHOPRIM
     Indication: PRODUCT USED FOR UNKNOWN INDICATION
     Dosage: UNK (UNK REPORTED: THERAPY START DATE / THERAPY END DATE ASKED BUT UNKNOWN)
     Route: 065
  5. REVLIMID [Suspect]
     Active Substance: LENALIDOMIDE
     Dosage: 10 MG (10 MILLIGRAMREPORTED: THERAPY START DATE / THERAPY END DATE ASKED BUT UNKNOWN)
     Route: 048
  6. ACICLOVIR [Suspect]
     Active Substance: ACYCLOVIR
     Indication: PRODUCT USED FOR UNKNOWN INDICATION
     Dosage: 200 MG (200 MILLIGRAMREPORTED: THERAPY START DATE / THERAPY END DATE ASKED BUT UNKNOWN)
     Route: 065
  7. DEXAMETHASONE. [Suspect]
     Active Substance: DEXAMETHASONE
     Indication: PRODUCT USED FOR UNKNOWN INDICATION
     Dosage: 40 MG (40 MILLIGRAMREPORTED: THERAPY START DATE / THERAPY END DATE ASKED BUT UNKNOWN)
     Route: 065
  8. LANSOPRAZOLE. [Suspect]
     Active Substance: LANSOPRAZOLE
     Indication: PRODUCT USED FOR UNKNOWN INDICATION
     Dosage: 30 MG (30 MILLIGRAMREPORTED: THERAPY START DATE / THERAPY END DATE ASKED BUT UNKNOWN)
     Route: 065
  9. SULFAMETHOXAZOLE [Suspect]
     Active Substance: SULFAMETHOXAZOLE
     Indication: PRODUCT USED FOR UNKNOWN INDICATION
     Dosage: UNK UNKREPORTED: THERAPY START DATE / THERAPY END DATE ASKED BUT UNKNOWN
     Route: 065
  10. REVLIMID [Suspect]
     Active Substance: LENALIDOMIDE
     Indication: PRODUCT USED FOR UNKNOWN INDICATION
     Dosage: 10 MG (10 MILLIGRAMREPORTED: THERAPY START DATE / THERAPY END DATE ASKED BUT UNKNOWN)
     Route: 048
  11. TRIMETHOPRIM. [Suspect]
     Active Substance: TRIMETHOPRIM
     Indication: PRODUCT USED FOR UNKNOWN INDICATION
     Dosage: UNK UNKREPORTED: THERAPY START DATE / THERAPY END DATE ASKED BUT UNKNOWN
     Route: 065
  12. DEXAMETHASONE SODIUM PHOSPHATE. [Suspect]
     Active Substance: DEXAMETHASONE SODIUM PHOSPHATE
     Indication: PRODUCT USED FOR UNKNOWN INDICATION
     Dosage: 40 MG
     Route: 065
  13. IXAZOMIB CITRATE [Suspect]
     Active Substance: IXAZOMIB CITRATE
     Indication: PRODUCT USED FOR UNKNOWN INDICATION
     Dosage: 3 MG  3 MILLIGRAMREPORTED: THERAPY START DATE / THERAPY END DATE ASKED BUT UNKNOWN
     Route: 065

REACTIONS (1)
  - Full blood count decreased [Unknown]
